FAERS Safety Report 15345322 (Version 4)
Quarter: 2019Q1

REPORT INFORMATION
  Report Type: Report from Study
  Country: US (occurrence: US)
  Receive Date: 20180903
  Receipt Date: 20190210
  Transmission Date: 20190417
  Serious: Yes (Other)
  Sender: FDA-Public Use
  Company Number: PHEH2018US035671

PATIENT
  Sex: Female
  Weight: 87 kg

DRUGS (2)
  1. COSENTYX [Suspect]
     Active Substance: SECUKINUMAB
     Indication: PSORIATIC ARTHROPATHY
     Dosage: 300 MG, QW
     Route: 058
     Dates: start: 20181023
  2. COSENTYX [Suspect]
     Active Substance: SECUKINUMAB
     Indication: PSORIASIS
     Dosage: 300 MG, QMO
     Route: 058
     Dates: end: 20181109

REACTIONS (6)
  - Arthralgia [Unknown]
  - Psoriasis [Unknown]
  - Drug effect decreased [Unknown]
  - Wound infection [Unknown]
  - Wound haemorrhage [Unknown]
  - Drug ineffective [Unknown]
